FAERS Safety Report 9525594 (Version 1)
Quarter: 2013Q1

REPORT INFORMATION
  Report Type: Spontaneous
  Country: US (occurrence: None)
  Receive Date: 20130314
  Receipt Date: 20130314
  Transmission Date: 20140127
  Serious: No
  Sender: FDA-Public Use
  Company Number: 1301USA013654

PATIENT
  Age: 53 Year
  Sex: Male

DRUGS (3)
  1. VICTRELIS (BOCEPREVIR) CAPSULE, 200MG [Suspect]
     Dates: start: 201301
  2. PEGINTRON (PEGINTERFERON ALFA-2B) POWDER FOR INJECTION [Suspect]
     Route: 058
     Dates: start: 201211
  3. REBETOL (RIBAVIRIN) CAPSULE, 200MG [Suspect]

REACTIONS (3)
  - Headache [None]
  - Vomiting [None]
  - Cough [None]
